FAERS Safety Report 19774267 (Version 1)
Quarter: 2021Q3

REPORT INFORMATION
  Report Type: Spontaneous
  Country: GR (occurrence: GR)
  Receive Date: 20210831
  Receipt Date: 20210831
  Transmission Date: 20211014
  Serious: Yes (Other)
  Sender: FDA-Public Use
  Company Number: GR-GILEAD-2021-0546206

PATIENT
  Age: 66 Year
  Sex: Male
  Weight: 105 kg

DRUGS (10)
  1. LORDIN [OMEPRAZOLE SODIUM] [Concomitant]
     Dosage: UNK
     Dates: start: 20210211
  2. VIBRAMYCIN [Concomitant]
     Active Substance: DOXYCYCLINE
     Dosage: UNK
     Dates: start: 20210213
  3. BRESEC [Concomitant]
     Dosage: UNK
     Dates: start: 20210213
  4. VEKLURY [Suspect]
     Active Substance: REMDESIVIR
     Dosage: 100 MG, QD
     Route: 042
     Dates: start: 20210212, end: 20210215
  5. KEPPRA [Concomitant]
     Active Substance: LEVETIRACETAM
  6. LOPRESOR [METOPROLOL FUMARATE] [Suspect]
     Active Substance: METOPROLOL FUMARATE
     Indication: TACHYARRHYTHMIA
     Dosage: 25 MG X 2
     Route: 065
     Dates: start: 20210212, end: 20210214
  7. INNOHEP [Concomitant]
     Active Substance: TINZAPARIN SODIUM
     Dosage: UNK
     Dates: start: 20210212
  8. ROACTEMRA [Concomitant]
     Active Substance: TOCILIZUMAB
     Dosage: UNK
     Dates: start: 20210212, end: 20210213
  9. DEXATON [DEXAMETHASONE SODIUM PHOSPHATE] [Concomitant]
     Dosage: UNK
     Dates: start: 20210211
  10. VEKLURY [Suspect]
     Active Substance: REMDESIVIR
     Indication: COVID-19
     Dosage: 200 MG, ONCE
     Route: 042
     Dates: start: 20210211, end: 20210211

REACTIONS (1)
  - Sinus bradycardia [Not Recovered/Not Resolved]

NARRATIVE: CASE EVENT DATE: 20210213
